FAERS Safety Report 9252188 (Version 2)
Quarter: 2013Q2

REPORT INFORMATION
  Report Type: Spontaneous
  Country: BR (occurrence: BR)
  Receive Date: 20130424
  Receipt Date: 20130510
  Transmission Date: 20140414
  Serious: Yes (Other)
  Sender: FDA-Public Use
  Company Number: BR-PFIZER INC-2013125111

PATIENT
  Age: 63 Year
  Sex: Female
  Weight: 68 kg

DRUGS (4)
  1. LIPITOR [Suspect]
     Indication: BLOOD CHOLESTEROL INCREASED
     Dosage: 1 TABLET (10MG), ^BEFORE^, 1X/DAY (AT NIGHT)
     Route: 048
     Dates: start: 201101, end: 201102
  2. LIPITOR [Suspect]
     Indication: LIVER DISORDER
     Dosage: UNK
     Route: 048
     Dates: start: 201106, end: 20130405
  3. LYRICA [Suspect]
     Indication: PAIN
     Dosage: 75 MG, EVERY 12 HOURS
     Route: 048
     Dates: start: 201210
  4. LYRICA [Suspect]
     Indication: POSTOPERATIVE CARE
     Dosage: 75 MG, 3X/DAY
     Route: 048

REACTIONS (5)
  - Spinal column injury [Not Recovered/Not Resolved]
  - Hepatic steatosis [Not Recovered/Not Resolved]
  - Drug effect incomplete [Not Recovered/Not Resolved]
  - Off label use [Not Recovered/Not Resolved]
  - Pain [Not Recovered/Not Resolved]
